FAERS Safety Report 6902804-X (Version None)
Quarter: 2010Q3

REPORT INFORMATION
  Report Type: 
  Country: None (occurrence: None)
  Receive Date: 20100803
  Receipt Date: 20080809
  Transmission Date: 20110219
  Serious: No
  Sender: FDA-Public Use
  Company Number: US-PFIZER INC-2008067371

PATIENT
  Sex: Female
  Weight: 68.2 kg

DRUGS (4)
  1. LYRICA [Suspect]
     Indication: FIBROMYALGIA
     Route: 048
     Dates: start: 20080101
  2. LYRICA [Suspect]
     Indication: PAIN IN JAW
  3. LISINOPRIL [Concomitant]
  4. AMBIEN [Concomitant]

REACTIONS (7)
  - ANXIETY [None]
  - DENTAL OPERATION [None]
  - DIZZINESS [None]
  - GINGIVAL SWELLING [None]
  - MUSCULOSKELETAL STIFFNESS [None]
  - OROPHARYNGEAL PAIN [None]
  - SOMNOLENCE [None]
